FAERS Safety Report 9069013 (Version 3)
Quarter: 2013Q1

REPORT INFORMATION
  Report Type: Spontaneous
  Country: DE (occurrence: DE)
  Receive Date: 20130215
  Receipt Date: 20130328
  Transmission Date: 20140127
  Serious: Yes (Other)
  Sender: FDA-Public Use
  Company Number: DE-AMGEN-DEUSP2013009555

PATIENT
  Age: 78 Year
  Sex: Male
  Weight: 73 kg

DRUGS (9)
  1. NPLATE [Suspect]
     Indication: IDIOPATHIC THROMBOCYTOPENIC PURPURA
     Dosage: 750 UNK, QWK
     Route: 058
     Dates: start: 200909
  2. ATACAND [Concomitant]
     Route: 048
  3. BERLINSULIN H [Concomitant]
     Route: 048
  4. CELLCEPT                           /01275102/ [Concomitant]
     Route: 048
  5. LYRICA [Concomitant]
     Route: 048
  6. METOHEXAL                          /00376902/ [Concomitant]
  7. PREDNISONE [Concomitant]
  8. TORASEMID [Concomitant]
  9. TRIAMTEREN [Concomitant]

REACTIONS (3)
  - Myelofibrosis [Not Recovered/Not Resolved]
  - Splenomegaly [Unknown]
  - Lymphadenopathy [Unknown]
